FAERS Safety Report 15492941 (Version 2)
Quarter: 2019Q1

REPORT INFORMATION
  Report Type: Report from Study
  Country: US (occurrence: US)
  Receive Date: 20181012
  Receipt Date: 20190107
  Transmission Date: 20190417
  Serious: No
  Sender: FDA-Public Use
  Company Number: PHEH2018US043329

PATIENT
  Sex: Female

DRUGS (1)
  1. COSENTYX [Suspect]
     Active Substance: SECUKINUMAB
     Indication: PSORIASIS
     Dosage: 300 MG, QMO
     Route: 058

REACTIONS (7)
  - Fungal infection [Unknown]
  - Oral infection [Unknown]
  - Psoriasis [Unknown]
  - Dry skin [Unknown]
  - Skin disorder [Unknown]
  - Stress [Unknown]
  - Drug ineffective [Unknown]
